FAERS Safety Report 10658137 (Version 2)
Quarter: 2014Q4

REPORT INFORMATION
  Report Type: Spontaneous
  Country: US (occurrence: US)
  Receive Date: 20141217
  Receipt Date: 20141217
  Transmission Date: 20150529
  Serious: No
  Sender: FDA-Public Use
  Company Number: US-GLAXOSMITHKLINE-A1063948A

PATIENT

DRUGS (1)
  1. VOTRIENT [Suspect]
     Active Substance: PAZOPANIB HYDROCHLORIDE
     Indication: RENAL CANCER
     Dosage: 800 MG = (4) 200 MG TABLETSHELD X 2 DAYS, THEN RESTARTED AT 200 MG TWICE A DAY.  AT TIME OF REP[...]
     Route: 065

REACTIONS (6)
  - Gastrointestinal disorder [Unknown]
  - Ill-defined disorder [Not Recovered/Not Resolved]
  - Constipation [Unknown]
  - Limb discomfort [Unknown]
  - Full blood count increased [Unknown]
  - Diarrhoea [Unknown]

NARRATIVE: CASE EVENT DATE: 201402
